FAERS Safety Report 18220437 (Version 1)
Quarter: 2020Q3

REPORT INFORMATION
  Report Type: Spontaneous
  Country: US (occurrence: US)
  Receive Date: 20200902
  Receipt Date: 20200902
  Transmission Date: 20201103
  Serious: Yes (Other)
  Sender: FDA-Public Use
  Company Number: US-EDENBRIDGE PHARMACEUTICALS, LLC-US-2020EDE000032

PATIENT
  Age: 5 Month
  Sex: Male

DRUGS (3)
  1. PREDNISOLONE SODIUM PHOSPHATE. [Suspect]
     Active Substance: PREDNISOLONE SODIUM PHOSPHATE
     Dosage: 14.25 MG (4 MG/KG/DAY), BID
     Route: 048
     Dates: start: 20200228
  2. VIGABATRIN. [Concomitant]
     Active Substance: VIGABATRIN
     Indication: EPILEPSY
     Dosage: UNK
     Route: 065
     Dates: start: 20200221
  3. PREDNISOLONE SODIUM PHOSPHATE. [Suspect]
     Active Substance: PREDNISOLONE SODIUM PHOSPHATE
     Indication: EPILEPSY
     Dosage: 28.5 MG (8 MG/KG/DAY), BID
     Route: 048
     Dates: start: 20200221, end: 20200227

REACTIONS (2)
  - Bradycardia [Recovered/Resolved]
  - Off label use [Unknown]

NARRATIVE: CASE EVENT DATE: 20200221
